FAERS Safety Report 9750508 (Version 3)
Quarter: 2014Q1

REPORT INFORMATION
  Report Type: Report from Study
  Country: GB (occurrence: GB)
  Receive Date: 20131212
  Receipt Date: 20140324
  Transmission Date: 20141002
  Serious: Yes (Hospitalization)
  Sender: FDA-Public Use
  Company Number: GB-BAYER-2013-148679

PATIENT
  Age: 52 Year
  Sex: Male

DRUGS (4)
  1. SORAFENIB (RAF KINASE INHIBITOR) [Suspect]
     Indication: RENAL CELL CARCINOMA
     Dosage: 400 MG
     Route: 048
     Dates: start: 20111027, end: 20131111
  2. PERINDOPRIL [Concomitant]
     Dosage: TOTAL DAILY DOSE 6 MG
     Route: 048
     Dates: start: 20111208
  3. AMLODIPINE [Concomitant]
     Dosage: TOTAL DAILY DOSE 20 MG
     Route: 048
     Dates: start: 20111109
  4. DOXAZOSIN [Concomitant]
     Dosage: TOTAL DAILY DOSE 8 MG
     Route: 048
     Dates: start: 20111109

REACTIONS (1)
  - Syncope [Recovered/Resolved]
